FAERS Safety Report 10072648 (Version 1)
Quarter: 2014Q2

REPORT INFORMATION
  Report Type: Spontaneous
  Country: IT (occurrence: IT)
  Receive Date: 20140411
  Receipt Date: 20140411
  Transmission Date: 20141212
  Serious: Yes (Disabling)
  Sender: FDA-Public Use
  Company Number: IT-JNJFOC-20140403157

PATIENT
  Age: 58 Year
  Sex: Male

DRUGS (3)
  1. STELARA [Suspect]
     Indication: PSORIASIS
     Route: 058
     Dates: start: 20120101, end: 20131231
  2. REMICADE [Suspect]
     Indication: PSORIASIS
     Route: 042
     Dates: start: 20110401, end: 20121231
  3. HUMIRA [Suspect]
     Indication: PSORIASIS
     Route: 065
     Dates: start: 20100701, end: 20110430

REACTIONS (1)
  - Adenocarcinoma of colon [Recovered/Resolved with Sequelae]
